FAERS Safety Report 19414363 (Version 1)
Quarter: 2021Q2

REPORT INFORMATION
  Report Type: Report from Study
  Country: CA (occurrence: CA)
  Receive Date: 20210615
  Receipt Date: 20210615
  Transmission Date: 20210717
  Serious: Yes (Other)
  Sender: FDA-Public Use
  Company Number: CA-NOVOPROD-819573

PATIENT
  Age: 33 Year
  Sex: Female
  Weight: 123.38 kg

DRUGS (2)
  1. SAXENDA [Suspect]
     Active Substance: LIRAGLUTIDE
     Indication: OBESITY
     Dosage: UNK
     Route: 058
     Dates: start: 20210506
  2. SAXENDA [Suspect]
     Active Substance: LIRAGLUTIDE
     Dosage: 2.4 MG, QD (INCREASED DOSE)
     Route: 058
     Dates: start: 20210528

REACTIONS (1)
  - Injection site plaque [Not Recovered/Not Resolved]

NARRATIVE: CASE EVENT DATE: 20210506
